FAERS Safety Report 4884723-6 (Version None)
Quarter: 2006Q1

REPORT INFORMATION
  Report Type: 
  Country: None (occurrence: None)
  Receive Date: 20060119
  Receipt Date: 20060110
  Transmission Date: 20060701
  Serious: Yes (Hospitalization)
  Sender: FDA-Public Use
  Company Number: US-JNJFOC-20060101925

PATIENT
  Sex: Female
  Weight: 78.02 kg

DRUGS (26)
  1. INFLIXIMAB [Suspect]
     Route: 042
  2. INFLIXIMAB [Suspect]
     Route: 042
  3. INFLIXIMAB [Suspect]
     Route: 042
  4. INFLIXIMAB [Suspect]
     Route: 042
  5. INFLIXIMAB [Suspect]
     Route: 042
  6. INFLIXIMAB [Suspect]
     Route: 042
  7. INFLIXIMAB [Suspect]
     Route: 042
  8. INFLIXIMAB [Suspect]
     Route: 042
  9. INFLIXIMAB [Suspect]
     Route: 042
  10. INFLIXIMAB [Suspect]
     Route: 042
  11. INFLIXIMAB [Suspect]
     Route: 042
  12. INFLIXIMAB [Suspect]
     Route: 042
  13. INFLIXIMAB [Suspect]
     Route: 042
  14. INFLIXIMAB [Suspect]
     Indication: CROHN'S DISEASE
     Route: 042
  15. ANTIDEPRESSANTS [Suspect]
     Indication: CROHN'S DISEASE
  16. NARCOTIC ANALGESICS [Suspect]
     Indication: CROHN'S DISEASE
  17. VITAMIN B-12 [Suspect]
     Indication: CROHN'S DISEASE
  18. CALCIUM GLUCONATE [Suspect]
     Indication: CROHN'S DISEASE
  19. PRENATAL VITAMINS [Suspect]
  20. PRENATAL VITAMINS [Suspect]
  21. PRENATAL VITAMINS [Suspect]
  22. PRENATAL VITAMINS [Suspect]
  23. PRENATAL VITAMINS [Suspect]
  24. PRENATAL VITAMINS [Suspect]
  25. PRENATAL VITAMINS [Suspect]
  26. PRENATAL VITAMINS [Suspect]
     Indication: CROHN'S DISEASE

REACTIONS (4)
  - BLOOD CALCIUM DECREASED [None]
  - BLOOD MAGNESIUM DECREASED [None]
  - BLOOD POTASSIUM DECREASED [None]
  - MUSCULAR WEAKNESS [None]
